FAERS Safety Report 9522156 (Version 1)
Quarter: 2013Q3

REPORT INFORMATION
  Report Type: Spontaneous
  Country: US (occurrence: US)
  Receive Date: 20130913
  Receipt Date: 20130913
  Transmission Date: 20140515
  Serious: No
  Sender: FDA-Public Use
  Company Number: US-SUCAMPO PHARMA AMERICAS, INC-SPI201300639

PATIENT
  Age: 51 Year
  Sex: Female
  Weight: 126.98 kg

DRUGS (4)
  1. AMITIZA [Suspect]
     Indication: IRRITABLE BOWEL SYNDROME
     Dosage: 8 MCG, UNK
     Route: 048
     Dates: start: 201307, end: 201308
  2. AMITIZA [Suspect]
     Dosage: 24 MCG, BID
     Route: 048
     Dates: start: 201308
  3. METFORMIN ER [Concomitant]
     Indication: DIABETES MELLITUS
     Dosage: 500 MG, QD
     Route: 048
     Dates: start: 201307
  4. LANSOPRAZOLE [Concomitant]
     Indication: GASTROOESOPHAGEAL REFLUX DISEASE
     Dosage: 30 MG, QD
     Route: 048
     Dates: start: 20130413

REACTIONS (5)
  - Hyperhidrosis [Unknown]
  - Palpitations [Not Recovered/Not Resolved]
  - Chest discomfort [Unknown]
  - Malaise [Unknown]
  - Drug ineffective [Unknown]
